FAERS Safety Report 21932231 (Version 3)
Quarter: 2023Q2

REPORT INFORMATION
  Report Type: Spontaneous
  Country: US (occurrence: US)
  Receive Date: 20230131
  Receipt Date: 20230621
  Transmission Date: 20230721
  Serious: No
  Sender: FDA-Public Use
  Company Number: US-PFIZER INC-PV202300015793

PATIENT
  Age: 63 Year
  Sex: Female

DRUGS (2)
  1. IBRANCE [Suspect]
     Active Substance: PALBOCICLIB
     Dosage: TAB 125MG
  2. IBRANCE [Suspect]
     Active Substance: PALBOCICLIB
     Dosage: TAB 100MG

REACTIONS (6)
  - Headache [Unknown]
  - Fatigue [Unknown]
  - Back pain [Unknown]
  - Nausea [Unknown]
  - Constipation [Unknown]
  - Stomatitis [Unknown]
